FAERS Safety Report 19673705 (Version 1)
Quarter: 2021Q3

REPORT INFORMATION
  Report Type: Spontaneous
  Country: US (occurrence: US)
  Receive Date: 20210807
  Receipt Date: 20210807
  Transmission Date: 20211014
  Serious: Yes (Other)
  Sender: FDA-Public Use
  Company Number: None

PATIENT
  Age: 71 Year
  Sex: Female
  Weight: 53.1 kg

DRUGS (12)
  1. PREVACID [Concomitant]
     Active Substance: LANSOPRAZOLE
  2. AREDS [Concomitant]
     Active Substance: MINERALS\VITAMINS
  3. LEVOTYROXINE [Concomitant]
  4. PRESERVATION [Concomitant]
  5. GLUCOSAMINE CONDROITIN [Concomitant]
  6. MELATONIN [Concomitant]
     Active Substance: MELATONIN
  7. DULOXIDINE [Concomitant]
  8. ZYPRASIDONE [Concomitant]
  9. WELLBUTRIN [Concomitant]
     Active Substance: BUPROPION HYDROCHLORIDE
  10. MAGNESIUM [Concomitant]
     Active Substance: MAGNESIUM
  11. ZIPRASIDONE HCL 10 MG [Suspect]
     Active Substance: ZIPRASIDONE HYDROCHLORIDE
     Indication: BIPOLAR DISORDER
     Dosage: ?          QUANTITY:78 CAPSULE(S);?
     Route: 048
     Dates: start: 20210501, end: 20210720
  12. ATENOLOL. [Concomitant]
     Active Substance: ATENOLOL

REACTIONS (4)
  - Tardive dyskinesia [None]
  - Bruxism [None]
  - Therapeutic response unexpected [None]
  - Product substitution issue [None]

NARRATIVE: CASE EVENT DATE: 20210620
